FAERS Safety Report 14850506 (Version 2)
Quarter: 2018Q2

REPORT INFORMATION
  Report Type: Spontaneous
  Country: NL (occurrence: NL)
  Receive Date: 20180505
  Receipt Date: 20180508
  Transmission Date: 20180711
  Serious: Yes (Hospitalization)
  Sender: FDA-Public Use
  Company Number: NL-CONCORDIA PHARMACEUTICALS INC.-E2B_00011579

PATIENT
  Age: 56 Year
  Sex: Female
  Weight: 65 kg

DRUGS (3)
  1. PARNATE [Suspect]
     Active Substance: TRANYLCYPROMINE SULFATE
     Indication: MAJOR DEPRESSION
     Dosage: 2 X 1
     Dates: start: 20160401
  2. KAAS [Concomitant]
  3. PARNATE [Suspect]
     Active Substance: TRANYLCYPROMINE SULFATE
     Indication: POST-TRAUMATIC STRESS DISORDER

REACTIONS (1)
  - Stress cardiomyopathy [Recovered/Resolved]

NARRATIVE: CASE EVENT DATE: 20160524
